FAERS Safety Report 7715020-9 (Version None)
Quarter: 2011Q3

REPORT INFORMATION
  Report Type: 
  Country: None (occurrence: None)
  Receive Date: 20110829
  Receipt Date: 20110520
  Transmission Date: 20111222
  Serious: No
  Sender: FDA-Public Use
  Company Number: US-ASTRAZENECA-2011SE31408

PATIENT
  Sex: Female

DRUGS (4)
  1. VIMOVO [Suspect]
     Indication: SJOGREN'S SYNDROME
     Dosage: 500/20
     Route: 048
  2. VIMOVO [Suspect]
     Indication: OSTEOARTHRITIS
     Dosage: 500/20
     Route: 048
  3. VIMOVO [Suspect]
     Indication: TENDONITIS
     Dosage: 500/20
     Route: 048
  4. BLOOD PRESSURE MEDICATIONS [Concomitant]

REACTIONS (2)
  - DRUG DOSE OMISSION [None]
  - MUSCULOSKELETAL STIFFNESS [None]
